FAERS Safety Report 25923037 (Version 2)
Quarter: 2025Q4

REPORT INFORMATION
  Report Type: Report from Study
  Country: US (occurrence: US)
  Receive Date: 20251015
  Receipt Date: 20251020
  Transmission Date: 20260118
  Serious: Yes (Other)
  Sender: ROCHE
  Company Number: US-ROCHE-10000394786

PATIENT
  Age: 49 Year
  Sex: Female

DRUGS (7)
  1. ACTEMRA [Suspect]
     Active Substance: TOCILIZUMAB
     Indication: Morphoea
     Route: 058
     Dates: start: 20250506, end: 20250805
  2. ACTEMRA [Suspect]
     Active Substance: TOCILIZUMAB
     Indication: Dermatomyositis
     Route: 058
     Dates: start: 202209
  3. ACTEMRA [Suspect]
     Active Substance: TOCILIZUMAB
     Indication: Myopathy
  4. ACTEMRA [Suspect]
     Active Substance: TOCILIZUMAB
     Indication: Systemic lupus erythematosus
  5. ACTEMRA [Suspect]
     Active Substance: TOCILIZUMAB
     Indication: Connective tissue disorder
  6. MYCOPHENOLATE MOFETIL [Suspect]
     Active Substance: MYCOPHENOLATE MOFETIL
     Indication: Skin exfoliation
     Dosage: TAKE 2 TABLET BY ORAL ROUTE EVERY DAY AT BED TIME
     Route: 048
     Dates: start: 20250506, end: 20250805
  7. MYCOPHENOLATE MOFETIL [Suspect]
     Active Substance: MYCOPHENOLATE MOFETIL
     Indication: Erythema
     Route: 048
     Dates: start: 202203

REACTIONS (12)
  - Off label use [Unknown]
  - Off label use [Unknown]
  - Interstitial lung disease [Unknown]
  - Gastrooesophageal reflux disease [Unknown]
  - Pulmonary arterial hypertension [Unknown]
  - Dysphagia [Unknown]
  - Alopecia [Unknown]
  - Vitamin D deficiency [Unknown]
  - Abdominal pain [Unknown]
  - Lipoma [Unknown]
  - Musculoskeletal discomfort [Unknown]
  - Neoplasm malignant [Unknown]

NARRATIVE: CASE EVENT DATE: 20250506
